FAERS Safety Report 5109918-8 (Version None)
Quarter: 2006Q3

REPORT INFORMATION
  Report Type: 
  Country: None (occurrence: None)
  Receive Date: 20060731
  Receipt Date: 20060404
  Transmission Date: 20061208
  Serious: No
  Sender: FDA-Public Use
  Company Number: 2006PV011488

PATIENT
  Age: 63 Year
  Sex: Female
  Weight: 107.9561 kg

DRUGS (3)
  1. BYETTA [Suspect]
     Indication: DIABETES MELLITUS NON-INSULIN-DEPENDENT
     Dosage: 5 MCG;BID;SC
     Route: 058
     Dates: start: 20060307
  2. ACTOS [Concomitant]
  3. GLIMEPIRIDE [Concomitant]

REACTIONS (8)
  - CONSTIPATION [None]
  - DIARRHOEA [None]
  - ERUCTATION [None]
  - HEADACHE [None]
  - INJECTION SITE IRRITATION [None]
  - INJECTION SITE PAIN [None]
  - NAUSEA [None]
  - PYREXIA [None]
